FAERS Safety Report 6354599-9 (Version None)
Quarter: 2009Q3

REPORT INFORMATION
  Report Type: 
  Country: None (occurrence: None)
  Receive Date: 20090909
  Receipt Date: 20090901
  Transmission Date: 20100115
  Serious: Yes (Other)
  Sender: FDA-Public Use
  Company Number: CHPA2009US18080

PATIENT
  Age: 70 Year
  Sex: Female
  Weight: 68 kg

DRUGS (2)
  1. EXCEDRIN (MIGRAINE) [Suspect]
     Indication: PAIN
     Dosage: UNK, UNK, ORAL
     Route: 048
  2. EXCEDRIN ES BACK + BODY (NCH) (ACETYLSALICYLIC ACID, ACETAMINOPHEN (PA [Suspect]
     Indication: FATIGUE
     Dosage: UNK, PRN, ORAL; 2 DF, QD, ORAL
     Route: 048
     Dates: start: 20090830, end: 20090831

REACTIONS (1)
  - HEPATIC NEOPLASM [None]
